FAERS Safety Report 19276151 (Version 23)
Quarter: 2022Q3

REPORT INFORMATION
  Report Type: Report from Study
  Country: GB (occurrence: GB)
  Receive Date: 20210519
  Receipt Date: 20220712
  Transmission Date: 20221027
  Serious: Yes (Hospitalization, Other)
  Sender: FDA-Public Use
  Company Number: GB-TAKEDA-2021TUS029503

PATIENT
  Age: 86 Year
  Sex: Male

DRUGS (7)
  1. IXAZOMIB [Suspect]
     Active Substance: IXAZOMIB
     Indication: Plasma cell myeloma
     Dosage: 4 MILLIGRAM
     Route: 048
     Dates: start: 20210430, end: 20211118
  2. IXAZOMIB [Suspect]
     Active Substance: IXAZOMIB
     Dosage: 4 MILLIGRAM
     Route: 048
     Dates: start: 20220111, end: 20220321
  3. IXAZOMIB [Suspect]
     Active Substance: IXAZOMIB
     Dosage: 4 MILLIGRAM
     Route: 048
     Dates: start: 20220429
  4. LENALIDOMIDE [Suspect]
     Active Substance: LENALIDOMIDE
     Indication: Plasma cell myeloma
     Dosage: UNK
     Route: 048
     Dates: start: 20120926, end: 20121001
  5. LENALIDOMIDE [Suspect]
     Active Substance: LENALIDOMIDE
     Dosage: 4 MILLIGRAM
     Route: 048
     Dates: start: 20210430, end: 20220321
  6. COTRIMOXAZOLE [Concomitant]
     Active Substance: SULFAMETHOXAZOLE\TRIMETHOPRIM
     Indication: Product used for unknown indication
     Dosage: UNK
     Route: 065
  7. SULFAMETHOXAZOLE [Concomitant]
     Active Substance: SULFAMETHOXAZOLE
     Indication: Product used for unknown indication
     Dosage: UNK
     Route: 065

REACTIONS (26)
  - Balance disorder [Unknown]
  - Fatigue [Not Recovered/Not Resolved]
  - Rash [Recovered/Resolved]
  - Neuropathy peripheral [Not Recovered/Not Resolved]
  - Nausea [Recovered/Resolved]
  - Constipation [Unknown]
  - Malaise [Unknown]
  - Gait disturbance [Unknown]
  - Body temperature increased [Unknown]
  - Dry mouth [Unknown]
  - Dry skin [Unknown]
  - Pollakiuria [Unknown]
  - Chest pain [Recovering/Resolving]
  - Dyspnoea [Not Recovered/Not Resolved]
  - Headache [Recovering/Resolving]
  - Back pain [Unknown]
  - Confusional state [Unknown]
  - Oral pain [Unknown]
  - Skin toxicity [Unknown]
  - Cough [Unknown]
  - Pruritus [Unknown]
  - Fall [Unknown]
  - Joint injury [Unknown]
  - Head injury [Unknown]
  - Dizziness [Unknown]
  - COVID-19 [Not Recovered/Not Resolved]

NARRATIVE: CASE EVENT DATE: 20210430
